FAERS Safety Report 10253471 (Version 2)
Quarter: 2014Q4

REPORT INFORMATION
  Report Type: Report from Study
  Country: NL (occurrence: NL)
  Receive Date: 20140623
  Receipt Date: 20141028
  Transmission Date: 20150528
  Serious: Yes (Other)
  Sender: FDA-Public Use
  Company Number: NL-009507513-1405NLD011062

PATIENT
  Age: 81 Year
  Sex: Male
  Weight: 81 kg

DRUGS (3)
  1. SIMVASTATIN. [Suspect]
     Active Substance: SIMVASTATIN
     Dosage: DAILY DOSE: 20
     Route: 048
     Dates: start: 20080303
  2. SELOKEEN [Suspect]
     Active Substance: METOPROLOL
     Dosage: DAILY DOSE: 50
     Route: 048
     Dates: start: 20080303
  3. SIMVASTATIN. [Suspect]
     Active Substance: SIMVASTATIN
     Indication: ACUTE CORONARY SYNDROME
     Dosage: UNK
     Route: 048
     Dates: start: 20070305, end: 20080303

REACTIONS (1)
  - Non-Hodgkin^s lymphoma [Not Recovered/Not Resolved]

NARRATIVE: CASE EVENT DATE: 20140401
